FAERS Safety Report 6252477-7 (Version None)
Quarter: 2009Q2

REPORT INFORMATION
  Report Type: 
  Country: None (occurrence: None)
  Receive Date: 20090629
  Receipt Date: 20090629
  Transmission Date: 20091009
  Serious: Yes (Other)
  Sender: FDA-Public Use
  Company Number: None

PATIENT
  Sex: Male
  Weight: 83.9154 kg

DRUGS (1)
  1. LUNESTA [Suspect]
     Indication: INSOMNIA
     Dosage: 3 MG TABLET 1 AT BED TIME ORAL
     Route: 048
     Dates: start: 20060815, end: 20060830

REACTIONS (11)
  - AGGRESSION [None]
  - ALCOHOL USE [None]
  - AMNESIA [None]
  - ANXIETY [None]
  - DEPRESSED MOOD [None]
  - EMOTIONAL DISORDER [None]
  - HALLUCINATION, AUDITORY [None]
  - HALLUCINATION, VISUAL [None]
  - HOMICIDE [None]
  - MEMORY IMPAIRMENT [None]
  - PARTNER STRESS [None]
